FAERS Safety Report 19831548 (Version 1)
Quarter: 2021Q3

REPORT INFORMATION
  Report Type: Spontaneous
  Country: US (occurrence: US)
  Receive Date: 20210915
  Receipt Date: 20210915
  Transmission Date: 20211014
  Serious: Yes (Other)
  Sender: FDA-Public Use
  Company Number: US-STRIDES ARCOLAB LIMITED-2021SP004229

PATIENT
  Age: 65 Year
  Sex: Male

DRUGS (4)
  1. TACROLIMUS. [Suspect]
     Active Substance: TACROLIMUS
     Indication: LUNG TRANSPLANT
     Dosage: 0.5 MILLIGRAM, TWICE DAILY
     Route: 065
  2. TACROLIMUS. [Suspect]
     Active Substance: TACROLIMUS
     Dosage: 0.25 MILLIGRAM, TWICE DAILY
     Route: 065
  3. MYCOPHENOLATE MOFETIL. [Suspect]
     Active Substance: MYCOPHENOLATE MOFETIL
     Indication: LUNG TRANSPLANT
     Dosage: 500 MILLIGRAM, TID
     Route: 065
  4. PREDNISOLONE. [Suspect]
     Active Substance: PREDNISOLONE
     Indication: LUNG TRANSPLANT
     Dosage: 10 MILLIGRAM DAILY
     Route: 065

REACTIONS (4)
  - Optic neuropathy [Unknown]
  - Acute kidney injury [Recovered/Resolved]
  - Varicella zoster virus infection [Recovered/Resolved]
  - Off label use [Unknown]
